FAERS Safety Report 12755376 (Version 3)
Quarter: 2019Q2

REPORT INFORMATION
  Report Type: Spontaneous
  Country: US (occurrence: US)
  Receive Date: 20160916
  Receipt Date: 20190604
  Transmission Date: 20190711
  Serious: Yes (Death, Other)
  Sender: FDA-Public Use
  Company Number: US-BAYER-2016-175353

PATIENT
  Age: 39 Year
  Sex: Female

DRUGS (1)
  1. MAGNEVIST [Suspect]
     Active Substance: GADOPENTETATE DIMEGLUMINE
     Indication: NUCLEAR MAGNETIC RESONANCE IMAGING BRAIN
     Dosage: UNK UNK, ONCE
     Dates: start: 20090910, end: 20090910

REACTIONS (9)
  - Contrast media deposition [None]
  - Pain [None]
  - Nephrogenic systemic fibrosis [Fatal]
  - Fibrosis [None]
  - Pulmonary fibrosis [Fatal]
  - Anxiety [None]
  - End stage renal disease [Fatal]
  - Skin fibrosis [None]
  - Emotional distress [None]

NARRATIVE: CASE EVENT DATE: 201310
